FAERS Safety Report 4401183-X (Version None)
Quarter: 2004Q3

REPORT INFORMATION
  Report Type: 
  Country: None (occurrence: None)
  Receive Date: 20040907
  Receipt Date: 20031205
  Transmission Date: 20050211
  Serious: No
  Sender: FDA-Public Use
  Company Number: US-BRISTOL-MYERS SQUIBB COMPANY-12451233

PATIENT
  Age: 72 Year
  Sex: Female

DRUGS (4)
  1. COUMADIN [Suspect]
     Indication: ATRIAL FIBRILLATION
     Dosage: INCREASED TO 3 MG OD 2 WEEKS AGO.
     Route: 048
  2. TIAZAC [Concomitant]
  3. PRINIVIL [Concomitant]
  4. VITAMIN E [Concomitant]

REACTIONS (3)
  - ARTHRALGIA [None]
  - ERYTHEMA [None]
  - VASODILATATION [None]
